FAERS Safety Report 7802727-8 (Version None)
Quarter: 2011Q4

REPORT INFORMATION
  Report Type: 
  Country: None (occurrence: None)
  Receive Date: 20111007
  Receipt Date: 20110928
  Transmission Date: 20120403
  Serious: Yes (Hospitalization)
  Sender: FDA-Public Use
  Company Number: US-ABBOTT-11P-163-0859479-05

PATIENT
  Sex: Female

DRUGS (17)
  1. HUMIRA [Suspect]
     Indication: CROHN'S DISEASE
     Dosage: 160 MG BASELINE; 80 MG WK 2
     Route: 058
     Dates: start: 20080222, end: 20100316
  2. MAGIC MOUTH WASH [Concomitant]
     Indication: MOUTH ULCERATION
     Dates: start: 20100127
  3. ALBUTEROL [Concomitant]
     Indication: COUGH
  4. HUMIRA [Suspect]
  5. CALCIUM CARBONATE [Concomitant]
     Indication: MINERAL SUPPLEMENTATION
     Dates: start: 20080122
  6. FOLIC ACID [Concomitant]
     Indication: VITAMIN SUPPLEMENTATION
     Dates: start: 20040219
  7. FLINSTONES MVI CHEW [Concomitant]
     Indication: VITAMIN SUPPLEMENTATION
     Dates: start: 20060101
  8. LANTUS [Concomitant]
     Indication: DIABETES MELLITUS
     Dosage: 100 U/ML, 30 UNITS AT BEDTIME
     Dates: start: 20070101
  9. IMMUNOSUPPRESANTS [Concomitant]
     Indication: PRODUCT USED FOR UNKNOWN INDICATION
  10. ALBUTEROL [Concomitant]
     Indication: DYSPNOEA
     Dosage: EVERY 4 HOURS AS NEEDED
     Dates: start: 20091123
  11. TYSABRI [Concomitant]
     Indication: PRODUCT USED FOR UNKNOWN INDICATION
     Dosage: 300MG/15ML EVERY MONTH
     Dates: start: 20110101
  12. CORTICOSTEROIDS [Concomitant]
     Indication: PRODUCT USED FOR UNKNOWN INDICATION
  13. HUMALOG [Concomitant]
     Indication: DIABETES MELLITUS
     Dosage: SLIDING SCALE-MAXIMUM DAILY DOSE 20 UNITS
     Dates: start: 20060101
  14. MAGNESIUM OXIDE [Concomitant]
     Indication: BLOOD MAGNESIUM DECREASED
     Dates: start: 20090830, end: 20090902
  15. MAGNESIUM OXIDE [Concomitant]
     Dates: start: 20091019
  16. CIMZIA [Concomitant]
     Indication: PRODUCT USED FOR UNKNOWN INDICATION
     Dosage: TAKE ON 3/31 THEN 4/14, THEN ONCE EVERY MONTH AFTER THAT
     Route: 058
     Dates: start: 20100331
  17. ULTRAM [Concomitant]
     Indication: PAIN
     Dates: start: 20090902

REACTIONS (1)
  - DIABETIC KETOACIDOSIS [None]
